FAERS Safety Report 20415041 (Version 2)
Quarter: 2023Q2

REPORT INFORMATION
  Report Type: Spontaneous
  Country: CA (occurrence: CA)
  Receive Date: 20220202
  Receipt Date: 20230417
  Transmission Date: 20230722
  Serious: Yes (Hospitalization, Other)
  Sender: FDA-Public Use
  Company Number: CA-009507513-1904CAN009572

PATIENT
  Age: 70 Year
  Sex: Female

DRUGS (73)
  1. SINEMET [Suspect]
     Active Substance: CARBIDOPA\LEVODOPA
     Indication: Parkinson^s disease
     Dosage: 250 MILLIGRAM, QD
     Route: 065
  2. SINEMET [Suspect]
     Active Substance: CARBIDOPA\LEVODOPA
     Indication: Product used for unknown indication
     Dosage: 100 MILLIGRAM, QD
     Route: 065
  3. SINEMET [Suspect]
     Active Substance: CARBIDOPA\LEVODOPA
     Indication: Parkinsonism
     Dosage: UNK, QD
     Route: 065
  4. SINEMET [Suspect]
     Active Substance: CARBIDOPA\LEVODOPA
     Dosage: 1 DOSAGE FORM, 1 EVERY 1 DAYS
     Route: 065
  5. SINEMET [Suspect]
     Active Substance: CARBIDOPA\LEVODOPA
     Dosage: UNK
     Route: 065
  6. SINEMET [Suspect]
     Active Substance: CARBIDOPA\LEVODOPA
     Dosage: UNK
     Route: 065
  7. SINEMET [Suspect]
     Active Substance: CARBIDOPA\LEVODOPA
     Dosage: UNK
     Route: 065
  8. SINEMET [Suspect]
     Active Substance: CARBIDOPA\LEVODOPA
     Dosage: UNK
     Route: 065
  9. SINEMET [Suspect]
     Active Substance: CARBIDOPA\LEVODOPA
     Dosage: UNK
     Route: 065
  10. SINEMET [Suspect]
     Active Substance: CARBIDOPA\LEVODOPA
     Dosage: UNK
     Route: 065
  11. CLOZAPINE [Suspect]
     Active Substance: CLOZAPINE
     Indication: Psychotic disorder
     Dosage: 37.5 MILLIGRAM, 1 EVERY 1 DAY
     Route: 065
  12. CLOZAPINE [Suspect]
     Active Substance: CLOZAPINE
     Indication: Parkinson^s disease
     Dosage: 62.5 MG, 1 EVERY 1 DAY
     Route: 065
  13. CLOZAPINE [Suspect]
     Active Substance: CLOZAPINE
     Dosage: UNK
     Route: 065
  14. CLOZAPINE [Suspect]
     Active Substance: CLOZAPINE
     Dosage: UNK
     Route: 065
  15. CLOZAPINE [Suspect]
     Active Substance: CLOZAPINE
     Dosage: UNK
     Route: 065
  16. CLOZAPINE [Suspect]
     Active Substance: CLOZAPINE
     Dosage: 37.5 MILLIGRAM, 1 EVERY 1 DAY (QD)
     Route: 065
  17. CLOZAPINE [Suspect]
     Active Substance: CLOZAPINE
     Dosage: UNK
     Route: 065
  18. ENTACAPONE [Suspect]
     Active Substance: ENTACAPONE
     Indication: Psychotic disorder
     Dosage: 1000 MILLIGRAM, 1 EVERY 1 DAY
     Route: 065
  19. ENTACAPONE [Suspect]
     Active Substance: ENTACAPONE
     Indication: Parkinson^s disease
     Dosage: 1000 MILLIGRAM, 1 EVERY 1 DAY
     Route: 065
  20. ENTACAPONE [Suspect]
     Active Substance: ENTACAPONE
     Dosage: 1000 MILLIGRAM, 1 EVERY 1 DAY
     Route: 065
  21. ENTACAPONE [Suspect]
     Active Substance: ENTACAPONE
     Dosage: 1000 MILLIGRAM
     Route: 065
  22. ENTACAPONE [Suspect]
     Active Substance: ENTACAPONE
     Dosage: 1000 MILLIGRAM
     Route: 065
  23. ENTACAPONE [Suspect]
     Active Substance: ENTACAPONE
     Dosage: 1000 MILLIGRAM, 1 EVERY 1 DAY (QD)
     Route: 065
  24. ENTACAPONE [Suspect]
     Active Substance: ENTACAPONE
     Dosage: UNK
     Route: 065
  25. FLORINEF ACETATE [Suspect]
     Active Substance: FLUDROCORTISONE ACETATE
     Indication: Psychotic disorder
     Dosage: 0.1 MILLIGRAM, 1 EVERY 1 DAY
     Route: 065
  26. FLORINEF ACETATE [Suspect]
     Active Substance: FLUDROCORTISONE ACETATE
     Indication: Product used for unknown indication
     Dosage: 0.1 MILLIGRAM, 1 EVERY 1 DAY
     Route: 065
  27. FLORINEF ACETATE [Suspect]
     Active Substance: FLUDROCORTISONE ACETATE
     Indication: Parkinson^s disease
  28. NABILONE [Suspect]
     Active Substance: NABILONE
     Indication: Product used for unknown indication
     Dosage: 1.0 MILLIGRAM,1 EVERY 1 DAY
     Route: 048
  29. NABILONE [Suspect]
     Active Substance: NABILONE
     Indication: Parkinson^s disease
     Dosage: UNK, DOSAGE FORM: NOT SPECIFIED
     Route: 048
  30. NABILONE [Suspect]
     Active Substance: NABILONE
     Indication: Dystonia
     Dosage: 2 DOSAGE FORM, QD
     Route: 048
  31. NABILONE [Suspect]
     Active Substance: NABILONE
     Dosage: 1 MILLIGRAM, 1 EVERY 1 DAY
     Route: 065
  32. NABILONE [Suspect]
     Active Substance: NABILONE
     Dosage: 1 MILLIGRAM
     Route: 048
  33. NABILONE [Suspect]
     Active Substance: NABILONE
     Dosage: UNK
     Route: 065
  34. NABILONE [Suspect]
     Active Substance: NABILONE
     Dosage: 1 MILLIGRAM
     Route: 065
  35. NABILONE [Suspect]
     Active Substance: NABILONE
     Dosage: 1 MILLIGRAM
     Route: 065
  36. NABILONE [Suspect]
     Active Substance: NABILONE
     Dosage: UNK
     Route: 065
  37. NABILONE [Suspect]
     Active Substance: NABILONE
     Dosage: 1 MILLIGRAM
     Route: 065
  38. NABILONE [Suspect]
     Active Substance: NABILONE
     Dosage: 1 MILLIGRAM
     Route: 065
  39. PRAMIPEXOLE [Suspect]
     Active Substance: PRAMIPEXOLE
     Indication: Product used for unknown indication
     Dosage: 4.5 MILLIGRAM, 1 EVERY 1 DAY
     Route: 065
  40. PRAMIPEXOLE [Suspect]
     Active Substance: PRAMIPEXOLE
     Indication: Parkinson^s disease
     Dosage: 12.5  MILLIGRAM, 1 EVERY 1 DAY
     Route: 065
  41. PRAMIPEXOLE [Suspect]
     Active Substance: PRAMIPEXOLE
     Indication: Parkinsonism
     Dosage: UNK
     Route: 065
  42. PRAMIPEXOLE [Suspect]
     Active Substance: PRAMIPEXOLE
     Dosage: 0.75 MILLIGRAM, QD
     Route: 065
  43. PRAMIPEXOLE [Suspect]
     Active Substance: PRAMIPEXOLE
     Dosage: 1.5 MILLIGRAM, 1 EVERY 1 DAY
     Route: 065
  44. PRAMIPEXOLE [Suspect]
     Active Substance: PRAMIPEXOLE
     Dosage: 4.5 MILLIGRAM
     Route: 065
  45. PRAMIPEXOLE [Suspect]
     Active Substance: PRAMIPEXOLE
     Dosage: 0.75 MILLIGRAM
     Route: 065
  46. PRAMIPEXOLE [Suspect]
     Active Substance: PRAMIPEXOLE
     Dosage: 1.5 MILLIGRAM
     Route: 065
  47. PRAMIPEXOLE [Suspect]
     Active Substance: PRAMIPEXOLE
     Dosage: 4.5 MILLIGRAM, QD
     Route: 065
  48. PRAMIPEXOLE [Suspect]
     Active Substance: PRAMIPEXOLE
     Dosage: 4.5 MILLIGRAM, 1 EVERY 1 DAY
     Route: 065
  49. PRAMIPEXOLE [Suspect]
     Active Substance: PRAMIPEXOLE
     Dosage: 4.5 MILLIGRAM, 1 EVERY 1 DAY
     Route: 065
  50. PRAMIPEXOLE [Suspect]
     Active Substance: PRAMIPEXOLE
     Dosage: 12.5  MILLIGRAM, 1 EVERY 1 DAY
     Route: 065
  51. PRAMIPEXOLE [Suspect]
     Active Substance: PRAMIPEXOLE
     Dosage: UNK
     Route: 065
  52. PRAMIPEXOLE [Suspect]
     Active Substance: PRAMIPEXOLE
     Dosage: UNK, DOSAGE FORM:  NOT SPECIFIED
     Route: 065
  53. QUETIAPINE FUMARATE [Suspect]
     Active Substance: QUETIAPINE FUMARATE
     Indication: Product used for unknown indication
     Dosage: 12.5 MILLIGRAM, 1 EVERY 1 DAY
     Route: 061
  54. QUETIAPINE FUMARATE [Suspect]
     Active Substance: QUETIAPINE FUMARATE
     Indication: Psychotic disorder
     Dosage: 12.5 MILLIGRAM, 1 EVERY 1 DAY (QD)
     Route: 048
  55. QUETIAPINE FUMARATE [Suspect]
     Active Substance: QUETIAPINE FUMARATE
     Dosage: 12.5 MILLIGRAM, 1 EVERY 1 DAY (QD)
     Route: 048
  56. QUETIAPINE FUMARATE [Suspect]
     Active Substance: QUETIAPINE FUMARATE
     Indication: Product used for unknown indication
     Dosage: 12.5 MILLIGRAM, 1 EVERY, 1 DAY
     Route: 065
  57. QUETIAPINE FUMARATE [Suspect]
     Active Substance: QUETIAPINE FUMARATE
     Indication: Psychotic disorder
  58. FLUDROCORTISONE [Suspect]
     Active Substance: FLUDROCORTISONE
     Indication: Psychotic disorder
     Dosage: 0.1 MILLIGRAM, QD
     Route: 065
  59. FLUDROCORTISONE [Suspect]
     Active Substance: FLUDROCORTISONE
     Dosage: 0.1 MILLIGRAM, 1 EVERY 1 DAY (QD)
     Route: 065
  60. MIRAPEX [Suspect]
     Active Substance: PRAMIPEXOLE DIHYDROCHLORIDE
     Indication: Parkinson^s disease
     Dosage: 4.5 MILLIGRAM, 1 EVERY 1 DAY
     Route: 065
  61. MIRAPEX [Suspect]
     Active Substance: PRAMIPEXOLE DIHYDROCHLORIDE
     Dosage: UNK
     Route: 065
  62. AMANTADINE HYDROCHLORIDE [Suspect]
     Active Substance: AMANTADINE HYDROCHLORIDE
     Indication: Psychotic disorder
     Dosage: 300 MILLIGRAM, 1 EVERY 1 DAY (QD)
     Route: 065
  63. AMANTADINE HYDROCHLORIDE [Suspect]
     Active Substance: AMANTADINE HYDROCHLORIDE
     Indication: Parkinson^s disease
     Dosage: 300 MILLIGRAM, 1 EVERY 1 DAY (QD)
     Route: 065
  64. AMANTADINE HYDROCHLORIDE [Suspect]
     Active Substance: AMANTADINE HYDROCHLORIDE
     Indication: Product used for unknown indication
     Dosage: 300 MILLIGRAM, 1 EVERY 1 DAY (QD)
     Route: 065
  65. AMANTADINE HYDROCHLORIDE [Suspect]
     Active Substance: AMANTADINE HYDROCHLORIDE
     Dosage: 300 MILLIGRAM, 1 EVERY 1 DAY (QD)
     Route: 065
  66. AMANTADINE HYDROCHLORIDE [Suspect]
     Active Substance: AMANTADINE HYDROCHLORIDE
     Dosage: 300 MILLIGRAM, 1 EVERY 1 DAY (QD)
     Route: 065
  67. AMANTADINE HYDROCHLORIDE [Suspect]
     Active Substance: AMANTADINE HYDROCHLORIDE
     Dosage: 300 MILLIGRAM, 1 EVERY 1 DAY (QD)
     Route: 065
  68. AMANTADINE HYDROCHLORIDE [Suspect]
     Active Substance: AMANTADINE HYDROCHLORIDE
     Dosage: 300 MILLIGRAM, 1 EVERY 1 DAY (QD)
     Route: 065
  69. AMANTADINE HYDROCHLORIDE [Suspect]
     Active Substance: AMANTADINE HYDROCHLORIDE
     Dosage: 300 MILLIGRAM, 1 EVERY 1 DAY (QD)
     Route: 065
  70. AMANTADINE HYDROCHLORIDE [Suspect]
     Active Substance: AMANTADINE HYDROCHLORIDE
     Dosage: 300 MILLIGRAM, 1 EVERY 1 DAY (QD)
     Route: 065
  71. AMANTADINE HYDROCHLORIDE [Suspect]
     Active Substance: AMANTADINE HYDROCHLORIDE
     Dosage: UNK, DOSAGE FORM:  NOT SPECIFIED
     Route: 065
  72. QUETIAPINE FUMARATE [Suspect]
     Active Substance: QUETIAPINE FUMARATE
     Indication: Product used for unknown indication
     Dosage: 12.5 MILLIGRAM, 1 EVERY 1 DAYS
     Route: 048
  73. QUETIAPINE FUMARATE [Suspect]
     Active Substance: QUETIAPINE FUMARATE
     Indication: Psychotic disorder

REACTIONS (9)
  - Acute psychosis [Unknown]
  - Parkinson^s disease psychosis [Unknown]
  - Therapeutic product effect incomplete [Unknown]
  - Therapeutic response shortened [Unknown]
  - Psychotic disorder [Unknown]
  - Orthostatic hypotension [Unknown]
  - Dystonia [Unknown]
  - Dyskinesia [Unknown]
  - Disorganised speech [Unknown]
